FAERS Safety Report 6596828-2 (Version None)
Quarter: 2010Q1

REPORT INFORMATION
  Report Type: 
  Country: None (occurrence: None)
  Receive Date: 20100223
  Receipt Date: 20100215
  Transmission Date: 20100710
  Serious: Yes (Life-Threatening, Hospitalization)
  Sender: FDA-Public Use
  Company Number: GXKR2010GB01884

PATIENT
  Sex: Female

DRUGS (9)
  1. ALENDRONIC ACID (NGX) [Suspect]
     Indication: OSTEOPOROSIS
     Dosage: 70 MG, QW
     Route: 048
     Dates: start: 20090825
  2. CALCICHEW D3 [Concomitant]
     Dosage: 1 DF, BID
     Route: 065
  3. LISINOPRIL [Concomitant]
     Dosage: 10 MG, QD
     Route: 048
  4. OMEPRAZOLE [Concomitant]
     Dosage: 20 MG, QD
  5. QUININE SULFATE [Concomitant]
     Dosage: 300 MG, QD
     Route: 065
  6. SULPHASALAZINE [Concomitant]
     Dosage: 500 MG, QID
  7. TOLTERODINE TARTRATE [Concomitant]
     Dosage: 4 MG, QD
     Route: 048
  8. PROCAL [Concomitant]
     Dosage: 30 ML, TID
  9. NUTRITION SUPPLEMENTS [Concomitant]
     Dosage: 200 ML, BID

REACTIONS (1)
  - ANKLE FRACTURE [None]
